FAERS Safety Report 9973265 (Version 1)
Quarter: 2014Q1

REPORT INFORMATION
  Report Type: Report from Study
  Country: US (occurrence: US)
  Receive Date: 20140306
  Receipt Date: 20140306
  Transmission Date: 20141002
  Serious: No
  Sender: FDA-Public Use
  Company Number: US-ABBVIE-13P-163-1154365-00

PATIENT
  Age: 20 Year
  Sex: Male

DRUGS (3)
  1. HUMIRA [Suspect]
     Indication: COLITIS ULCERATIVE
     Dosage: LOADING DOSE
     Dates: start: 20131003, end: 20131003
  2. HUMIRA [Suspect]
  3. LIALDA [Concomitant]
     Indication: COLITIS ULCERATIVE

REACTIONS (5)
  - Feeling hot [Recovered/Resolved]
  - Presyncope [Recovered/Resolved]
  - Chest pain [Unknown]
  - Hyperhidrosis [Recovered/Resolved]
  - Headache [Unknown]
